FAERS Safety Report 9008100 (Version 1)
Quarter: 2013Q1

REPORT INFORMATION
  Report Type: Spontaneous
  Country: US (occurrence: US)
  Receive Date: 20130111
  Receipt Date: 20130111
  Transmission Date: 20140127
  Serious: Yes (Other)
  Sender: FDA-Public Use
  Company Number: US-009507513-1301USA003410

PATIENT
  Age: 65 Year
  Sex: Female

DRUGS (5)
  1. SINGULAIR [Suspect]
     Route: 048
  2. VENTOLIN (ALBUTEROL) [Suspect]
     Indication: HIATUS HERNIA
     Route: 055
  3. SERETIDE [Suspect]
     Route: 055
  4. TRIAMCINOLONE [Concomitant]
     Indication: BLOOD PRESSURE
  5. DIHYDROCODEINE BITARTRATE [Concomitant]
     Indication: GASTROINTESTINAL DISORDER

REACTIONS (4)
  - Increased upper airway secretion [Unknown]
  - Dyspnoea [Unknown]
  - Cough [Unknown]
  - Asthma [Unknown]
